FAERS Safety Report 8757603 (Version 2)
Quarter: 2012Q4

REPORT INFORMATION
  Report Type: 
  Country: US (occurrence: US)
  Receive Date: 20120828
  Receipt Date: 20120828
  Transmission Date: 20130627
  Serious: No
  Sender: FDA-Public Use
  Company Number: US-MYLANLABS-2012S1007709

PATIENT
  Age: 83 Year
  Sex: Female
  Weight: 45.36 kg

DRUGS (10)
  1. TEMAZEPAM CAPSULES [Suspect]
     Indication: INSOMNIA
     Route: 048
     Dates: start: 2010, end: 201203
  2. ENALAPRIL [Concomitant]
  3. LBS II [Concomitant]
  4. CORAL CALCIUM [Concomitant]
  5. CO Q10 [Concomitant]
  6. MULTIVITAMIN [Concomitant]
  7. ASPIRIN [Concomitant]
  8. ALOE /02115303/ [Concomitant]
  9. VITAMIN C [Concomitant]
  10. PROBIOTIC [Concomitant]

REACTIONS (5)
  - Drug ineffective [Recovered/Resolved]
  - Insomnia [Recovered/Resolved]
  - Restlessness [Recovered/Resolved]
  - Nightmare [Recovered/Resolved]
  - Unevaluable event [Recovered/Resolved]
